FAERS Safety Report 19188343 (Version 3)
Quarter: 2021Q2

REPORT INFORMATION
  Report Type: Report from Study
  Country: US (occurrence: US)
  Receive Date: 20210427
  Receipt Date: 20210608
  Transmission Date: 20210717
  Serious: Yes (Death, Hospitalization)
  Sender: FDA-Public Use
  Company Number: US-CELGENEUS-USA-20210201337

PATIENT
  Age: 67 Year
  Sex: Male
  Weight: 91.6 kg

DRUGS (2)
  1. AZACITIDINE. [Suspect]
     Active Substance: AZACITIDINE
     Indication: ACUTE MYELOID LEUKAEMIA
     Route: 058
     Dates: start: 20191212, end: 20200128
  2. VYXEOS [Concomitant]
     Active Substance: CYTARABINE\DAUNORUBICIN
     Indication: PRODUCT USED FOR UNKNOWN INDICATION
     Route: 065
     Dates: start: 20200616, end: 20200920

REACTIONS (2)
  - Acute myeloid leukaemia [Fatal]
  - Pancytopenia [Recovered/Resolved]

NARRATIVE: CASE EVENT DATE: 20200904
